FAERS Safety Report 5714551-0 (Version None)
Quarter: 2008Q2

REPORT INFORMATION
  Report Type: 
  Country: None (occurrence: None)
  Receive Date: 20080423
  Receipt Date: 20080421
  Transmission Date: 20081010
  Serious: Yes (Other)
  Sender: FDA-Public Use
  Company Number: A0723350A

PATIENT
  Age: 40 Year
  Sex: Female

DRUGS (3)
  1. ALLI [Suspect]
     Indication: WEIGHT LOSS DIET
     Route: 048
     Dates: start: 20080401
  2. METRONIDAZOLE HCL [Suspect]
     Indication: GASTROINTESTINAL INFECTION
     Dosage: 500MG UNKNOWN
     Route: 065
  3. TEGRETOL [Concomitant]

REACTIONS (18)
  - ABDOMINAL PAIN [None]
  - ASTHENIA [None]
  - DEHYDRATION [None]
  - DIARRHOEA [None]
  - DIARRHOEA HAEMORRHAGIC [None]
  - DIZZINESS [None]
  - FAECES DISCOLOURED [None]
  - GASTROINTESTINAL INFECTION [None]
  - HAEMATOCHEZIA [None]
  - IMPAIRED DRIVING ABILITY [None]
  - INFLAMMATION [None]
  - NAUSEA [None]
  - PAIN [None]
  - PLATELET COUNT INCREASED [None]
  - RECTAL HAEMORRHAGE [None]
  - STEATORRHOEA [None]
  - VOMITING [None]
  - WHITE BLOOD CELL COUNT INCREASED [None]
